FAERS Safety Report 5909362-7 (Version None)
Quarter: 2008Q4

REPORT INFORMATION
  Report Type: 
  Country: None (occurrence: None)
  Receive Date: 20081006
  Receipt Date: 20080930
  Transmission Date: 20090506
  Serious: No
  Sender: FDA-Public Use
  Company Number: US-B.I. PHARMACEUTICALS,INC./RIDGEFIELD-2008-BP-14276BP

PATIENT
  Sex: Female

DRUGS (12)
  1. MIRAPEX [Suspect]
     Indication: RESTLESS LEGS SYNDROME
     Dosage: .25MG
     Route: 048
  2. MIRAPEX [Suspect]
  3. MIRAPEX [Suspect]
  4. MIRAPEX [Suspect]
  5. HYDROCHLOROTHIAZIDE [Concomitant]
     Indication: DIURETIC THERAPY
  6. ASPIRIN [Concomitant]
     Indication: PROMOTION OF PERIPHERAL CIRCULATION
  7. NEXIUM [Concomitant]
     Indication: GASTRIC PH DECREASED
  8. CYMBALTA [Concomitant]
     Indication: NEUROPATHY PERIPHERAL
     Dosage: 30MG
  9. ESTRADILE [Concomitant]
     Indication: HORMONE REPLACEMENT THERAPY
  10. AVAPRO [Concomitant]
     Indication: CARDIAC DISORDER
  11. PROVENTIL [Concomitant]
     Indication: MULTIPLE ALLERGIES
     Route: 055
  12. ASTELIN [Concomitant]
     Indication: MULTIPLE ALLERGIES
     Route: 045

REACTIONS (2)
  - NAUSEA [None]
  - THERAPEUTIC REACTION TIME DECREASED [None]
